FAERS Safety Report 8854833 (Version 3)
Quarter: 2012Q4

REPORT INFORMATION
  Report Type: 
  Country: GB (occurrence: GB)
  Receive Date: 20121023
  Receipt Date: 20121213
  Transmission Date: 20130627
  Serious: Yes (Hospitalization, Other)
  Sender: FDA-Public Use
  Company Number: PHFR2012GB005512

PATIENT
  Age: 47 None
  Sex: Male
  Weight: 92 kg

DRUGS (8)
  1. TEGRETOL RETARD [Suspect]
     Indication: EPILEPSY
     Dosage: 400 mg, BID
     Route: 048
     Dates: start: 200606
  2. AMLODIPINE [Interacting]
     Indication: HYPERTENSION
     Dosage: 10 mg, Daily
     Route: 048
     Dates: start: 200901
  3. ASPIRIN [Concomitant]
     Indication: CEREBROVASCULAR ACCIDENT
     Dosage: 75 mg, Daily
     Route: 048
     Dates: start: 200901
  4. ATORVASTATIN [Concomitant]
     Indication: CEREBROVASCULAR ACCIDENT
     Dosage: 40 mg, Daily
     Route: 048
     Dates: start: 200901
  5. KEPPRA [Concomitant]
     Indication: EPILEPSY
     Dosage: 2 g, BID
     Route: 048
     Dates: start: 20040908
  6. LANSOPRAZOLE [Concomitant]
     Indication: DYSPEPSIA
     Dosage: 30 mg, Daily
     Route: 048
     Dates: start: 20030203
  7. ANTACIDS [Concomitant]
  8. SIMVASTATIN [Concomitant]

REACTIONS (6)
  - Hemiparesis [Unknown]
  - Basal ganglia infarction [Unknown]
  - Cerebrovascular accident [Recovering/Resolving]
  - Hypertension [Not Recovered/Not Resolved]
  - Drug interaction [Unknown]
  - Fatigue [Unknown]
